FAERS Safety Report 18403392 (Version 1)
Quarter: 2020Q4

REPORT INFORMATION
  Report Type: Spontaneous
  Country: US (occurrence: US)
  Receive Date: 20201019
  Receipt Date: 20201019
  Transmission Date: 20210114
  Serious: Yes (Other)
  Sender: FDA-Public Use
  Company Number: None

PATIENT
  Age: 53 Year
  Sex: Female

DRUGS (1)
  1. TYMLOS [Suspect]
     Active Substance: ABALOPARATIDE
     Indication: OSTEOPOROSIS POSTMENOPAUSAL
     Dosage: ?          QUANTITY:1.56 ML MILLILITRE(S);OTHER ROUTE:UNDER THE SKIN?
     Route: 058
     Dates: start: 20200430

REACTIONS (1)
  - Hypotension [None]

NARRATIVE: CASE EVENT DATE: 20200430
